FAERS Safety Report 9121126 (Version 1)
Quarter: 2013Q1

REPORT INFORMATION
  Report Type: Spontaneous
  Country: CA (occurrence: CA)
  Receive Date: 20130226
  Receipt Date: 20130226
  Transmission Date: 20140127
  Serious: Yes (Other)
  Sender: FDA-Public Use
  Company Number: CA-PFIZER INC-2013065391

PATIENT
  Sex: Female

DRUGS (1)
  1. CHAMPIX [Suspect]

REACTIONS (7)
  - Pulmonary hypertension [Unknown]
  - Suicidal ideation [Recovered/Resolved]
  - Abnormal behaviour [Unknown]
  - Abnormal dreams [Unknown]
  - Dyspnoea [Unknown]
  - Weight increased [Unknown]
  - Cough [Unknown]
